FAERS Safety Report 8821098 (Version 1)
Quarter: 2012Q4

REPORT INFORMATION
  Report Type: 
  Country: US (occurrence: US)
  Receive Date: 20121002
  Receipt Date: 20121002
  Transmission Date: 20130627
  Serious: Yes (Other)
  Sender: FDA-Public Use
  Company Number: US-GLAXOSMITHKLINE-A0995285A

PATIENT
  Age: 66 Year
  Sex: Female

DRUGS (5)
  1. ADVAIR [Suspect]
     Indication: CHRONIC OBSTRUCTIVE PULMONARY DISEASE
     Dosage: 1PUFF Twice per day
     Route: 055
     Dates: start: 200904
  2. SPIRIVA [Concomitant]
  3. SINGULAIR [Concomitant]
  4. THEOPHYLLINE [Concomitant]
  5. ATENOLOL [Concomitant]

REACTIONS (3)
  - Haemorrhage subcutaneous [Not Recovered/Not Resolved]
  - Petechiae [Not Recovered/Not Resolved]
  - Skin discolouration [Not Recovered/Not Resolved]
